FAERS Safety Report 5303906-4 (Version None)
Quarter: 2007Q1

REPORT INFORMATION
  Report Type: 
  Country: None (occurrence: None)
  Receive Date: 20070201
  Receipt Date: 20061118
  Transmission Date: 20070707
  Serious: No
  Sender: FDA-Public Use
  Company Number: 2006PV025563

PATIENT
  Age: 61 Year
  Sex: Male
  Weight: 127.0072 kg

DRUGS (9)
  1. BYETTA [Suspect]
     Indication: DIABETES MELLITUS NON-INSULIN-DEPENDENT
     Dosage: 5 MCG; BID;SC
     Route: 058
     Dates: start: 20061115, end: 20061101
  2. BYETTA [Suspect]
     Dosage: 5 MCG; BID;SC
     Route: 058
     Dates: start: 20061129, end: 20061130
  3. BYETTA [Suspect]
     Dosage: 5 MCG;BID;SC
     Route: 058
     Dates: start: 20061101, end: 20061201
  4. BYETTA [Suspect]
     Dosage: 5 MCG;BID;SC
     Route: 058
     Dates: start: 20061213
  5. METFORMIN HCL [Concomitant]
  6. GLIPIZIDE ER [Concomitant]
  7. AVANDIA [Concomitant]
  8. GLIPIZIDE [Concomitant]
  9. JANUVIA [Concomitant]

REACTIONS (11)
  - ABDOMINAL PAIN UPPER [None]
  - BLOOD GLUCOSE DECREASED [None]
  - BLOOD GLUCOSE INCREASED [None]
  - DECREASED APPETITE [None]
  - DIARRHOEA [None]
  - DYSPEPSIA [None]
  - HEADACHE [None]
  - INSOMNIA [None]
  - MEDICATION ERROR [None]
  - NAUSEA [None]
  - TREMOR [None]
